FAERS Safety Report 9910757 (Version 2)
Quarter: 2014Q1

REPORT INFORMATION
  Report Type: Spontaneous
  Country: US (occurrence: US)
  Receive Date: 20140219
  Receipt Date: 20140219
  Transmission Date: 20141002
  Serious: No
  Sender: FDA-Public Use
  Company Number: US-GILEAD-2012-0053540

PATIENT
  Sex: Female

DRUGS (3)
  1. LETAIRIS [Suspect]
     Indication: PULMONARY HYPERTENSION
     Dosage: 10 MG, UNK
     Route: 048
     Dates: start: 20110520
  2. LETAIRIS [Suspect]
     Indication: MIXED CONNECTIVE TISSUE DISEASE
  3. TYVASO [Concomitant]

REACTIONS (7)
  - Ankle fracture [Unknown]
  - Ligament sprain [Unknown]
  - Muscular weakness [Unknown]
  - Throat irritation [Unknown]
  - Increased upper airway secretion [Unknown]
  - Insomnia [Unknown]
  - Dyspnoea [Unknown]
